FAERS Safety Report 8591928-X (Version None)
Quarter: 2012Q3

REPORT INFORMATION
  Report Type: 
  Country: None (occurrence: None)
  Receive Date: 20120814
  Receipt Date: 20120809
  Transmission Date: 20120928
  Serious: Yes (Hospitalization, Other)
  Sender: FDA-Public Use
  Company Number: JP-GENZYME-THYM-1003200

PATIENT
  Sex: Female
  Weight: 51 kg

DRUGS (55)
  1. OMEPRAZOLE [Concomitant]
     Indication: PROPHYLAXIS AGAINST GASTROINTESTINAL ULCER
     Dosage: UNK
     Route: 065
     Dates: start: 20110508, end: 20110630
  2. TACROLIMUS [Concomitant]
     Dosage: UNK
     Route: 065
     Dates: start: 20110404, end: 20110606
  3. CYCLOPHOSPHAMIDE [Concomitant]
     Indication: PRODUCT USED FOR UNKNOWN INDICATION
     Dosage: UNK
     Route: 065
     Dates: start: 20110331, end: 20110403
  4. HEPARIN SODIUM [Concomitant]
     Indication: PROPHYLAXIS
     Dosage: UNK
     Route: 065
     Dates: start: 20110330, end: 20110517
  5. DEXAMETHASONE [Concomitant]
     Dosage: UNK
     Route: 065
     Dates: start: 20110621, end: 20110621
  6. MELPHALAN HYDROCHLORIDE [Concomitant]
     Indication: PRODUCT USED FOR UNKNOWN INDICATION
     Dosage: UNK
     Route: 065
     Dates: start: 20110619, end: 20110620
  7. FLUCONAZOLE [Concomitant]
     Indication: ANTIFUNGAL PROPHYLAXIS
     Dosage: UNK
     Route: 065
     Dates: start: 20110330, end: 20110616
  8. SULFAMETHOXAZOLE W [Concomitant]
     Indication: ANTIFUNGAL PROPHYLAXIS
     Dosage: UNK
     Route: 065
     Dates: start: 20110330, end: 20110403
  9. SODIUM BICARBONATE [Concomitant]
     Indication: PROPHYLAXIS
     Dosage: UNK
     Route: 065
     Dates: start: 20110331, end: 20110403
  10. SODIUM BICARBONATE [Concomitant]
     Dosage: UNK
     Route: 065
     Dates: start: 20110619, end: 20110620
  11. METHOTREXATE [Concomitant]
     Indication: PROPHYLAXIS AGAINST GRAFT VERSUS HOST DISEASE
     Dosage: UNK
     Route: 065
     Dates: start: 20110406, end: 20110416
  12. TOTAL BODY IRRADIATION [Concomitant]
     Dosage: UNK
     Route: 065
     Dates: start: 20110621, end: 20110621
  13. URSODESOXYCHOLIC ACID [Concomitant]
     Indication: PROPHYLAXIS
     Dosage: UNK
     Route: 065
     Dates: start: 20110330, end: 20110811
  14. SENNOSIDE [Concomitant]
     Indication: CONSTIPATION PROPHYLAXIS
     Dosage: UNK
     Route: 065
     Dates: start: 20100126, end: 20110406
  15. MYCOPHENOLATE MOFETIL [Concomitant]
     Indication: PROPHYLAXIS AGAINST GRAFT VERSUS HOST DISEASE
     Dosage: UNK
     Route: 065
     Dates: start: 20110412, end: 20110502
  16. OMEPRAZOLE [Concomitant]
     Dosage: UNK
     Route: 065
     Dates: start: 20110909
  17. TACROLIMUS [Concomitant]
     Dosage: UNK
     Route: 065
     Dates: start: 20110621, end: 20110915
  18. GRANISETRON HYDROCHLORIDE [Concomitant]
     Dosage: UNK
     Route: 065
     Dates: start: 20110619, end: 20110620
  19. HYDROXYZINE PAMOATE [Concomitant]
     Indication: PROPHYLAXIS OF NAUSEA AND VOMITING
     Dosage: UNK
     Route: 065
     Dates: start: 20110404, end: 20110405
  20. FLUDARA [Suspect]
     Dosage: 110 MG/DAY, QID
     Route: 065
     Dates: start: 20110617, end: 20110620
  21. METOCLOPRAMIDE [Concomitant]
     Indication: PROPHYLAXIS OF NAUSEA AND VOMITING
     Dosage: UNK
     Route: 065
     Dates: start: 20110412, end: 20110630
  22. LEUCOVORIN CALCIUM [Concomitant]
     Dosage: UNK
     Route: 065
     Dates: start: 20110811, end: 20110925
  23. HEPARIN SODIUM [Concomitant]
     Dosage: UNK
     Route: 065
     Dates: start: 20110617, end: 20110807
  24. METHYLPREDNISOLONE SODIUM SUCCINATE [Concomitant]
     Indication: PREMEDICATION
     Dosage: UNK
     Route: 065
     Dates: start: 20110331, end: 20110403
  25. CONCENTRATED GLYCERIN FRUCTOSE [Concomitant]
     Indication: PROPHYLAXIS
     Dosage: UNK
     Route: 065
     Dates: start: 20110404, end: 20110404
  26. FLUCONAZOLE [Concomitant]
     Dosage: UNK
     Route: 065
     Dates: start: 20110926
  27. SULFAMETHOXAZOLE W [Concomitant]
     Dosage: UNK
     Route: 065
     Dates: start: 20110801, end: 20110805
  28. MAGNESIUM OXIDE [Concomitant]
     Indication: CONSTIPATION PROPHYLAXIS
     Dosage: UNK
     Route: 065
     Dates: start: 20100126, end: 20110806
  29. OMEPRAZOLE [Concomitant]
     Dosage: UNK
     Route: 065
     Dates: start: 20110630, end: 20110909
  30. ITRACONAZOLE [Concomitant]
     Indication: ANTIFUNGAL PROPHYLAXIS
     Dosage: UNK
     Route: 065
     Dates: start: 20110604, end: 20110609
  31. CORD BLOOD TRANSPLANTATION [Concomitant]
     Indication: APLASTIC ANAEMIA
     Dosage: UNK
     Route: 065
     Dates: start: 20110622, end: 20110622
  32. DONOR BONE MARROW INFUSION [Concomitant]
     Indication: APLASTIC ANAEMIA
     Dosage: UNK
     Route: 065
     Dates: start: 20110405, end: 20110405
  33. SULFAMETHOXAZOLE W [Concomitant]
     Dosage: UNK
     Route: 065
     Dates: start: 20110429, end: 20110616
  34. ACYCLOVIR [Concomitant]
     Dosage: UNK
     Route: 065
     Dates: start: 20110709, end: 20110905
  35. GRANISETRON HYDROCHLORIDE [Concomitant]
     Dosage: UNK
     Route: 065
     Dates: start: 20110621, end: 20110621
  36. CEFTRIAXONE SODIUM [Concomitant]
     Indication: PROPHYLAXIS
     Dosage: UNK
     Route: 065
     Dates: start: 20110519, end: 20110526
  37. THYMOGLOBULIN [Suspect]
     Indication: BONE MARROW CONDITIONING REGIMEN
     Dosage: 63 MG, QD
     Route: 042
     Dates: start: 20110331, end: 20110403
  38. ACYCLOVIR [Concomitant]
     Indication: ANTIVIRAL PROPHYLAXIS
     Dosage: UNK
     Route: 065
     Dates: start: 20110330, end: 20110630
  39. ACYCLOVIR [Concomitant]
     Dosage: UNK
     Route: 065
     Dates: start: 20110906
  40. CARBAZOCHROME SODIUM SULFONATE [Concomitant]
     Indication: HAEMORRHAGE PROPHYLAXIS
     Dosage: UNK
     Route: 065
     Dates: start: 20101019, end: 20110512
  41. MYCOPHENOLATE MOFETIL [Concomitant]
     Dosage: UNK
     Route: 065
     Dates: start: 20110629, end: 20110719
  42. ETIZOLAM [Concomitant]
     Indication: PROPHYLAXIS OF NAUSEA AND VOMITING
     Dosage: UNK
     Route: 065
     Dates: start: 20110701, end: 20110811
  43. TACROLIMUS [Concomitant]
     Indication: PROPHYLAXIS AGAINST GRAFT VERSUS HOST DISEASE
     Dosage: UNK
     Route: 065
     Dates: start: 20110916
  44. HYDROCORTISONE SODIUM SUCCINATE [Concomitant]
     Indication: PROPHYLAXIS OF NAUSEA AND VOMITING
     Dosage: UNK
     Route: 065
     Dates: start: 20110331, end: 20110401
  45. GRANISETRON HYDROCHLORIDE [Concomitant]
     Indication: PROPHYLAXIS OF NAUSEA AND VOMITING
     Dosage: UNK
     Route: 065
     Dates: start: 20110331, end: 20110403
  46. FUROSEMIDE [Concomitant]
     Indication: PROPHYLAXIS
     Dosage: UNK
     Route: 065
     Dates: start: 20110331, end: 20110403
  47. DEXAMETHASONE [Concomitant]
     Indication: PROPHYLAXIS OF NAUSEA AND VOMITING
     Dosage: UNK
     Route: 065
     Dates: start: 20110404, end: 20110404
  48. HYDROXYZINE PAMOATE [Concomitant]
     Dosage: UNK
     Route: 065
     Dates: start: 20110621, end: 20110622
  49. CONCENTRATED GLYCERIN FRUCTOSE [Concomitant]
     Dosage: UNK
     Route: 065
     Dates: start: 20110621, end: 20110621
  50. HAPTOGLOBINS [Concomitant]
     Indication: PROPHYLAXIS
     Dosage: UNK
     Route: 065
     Dates: start: 20110405, end: 20110405
  51. TOTAL BODY IRRADIATION [Concomitant]
     Indication: BONE MARROW CONDITIONING REGIMEN
     Dosage: UNK
     Route: 065
     Dates: start: 20110404, end: 20110404
  52. FLUDARA [Suspect]
     Indication: PRODUCT USED FOR UNKNOWN INDICATION
     Dosage: 36 MG/DAY, QID
     Route: 065
     Dates: start: 20110331, end: 20110403
  53. LEUCOVORIN CALCIUM [Concomitant]
     Indication: DRUG TOXICITY PROPHYLAXIS
     Dosage: UNK
     Route: 065
     Dates: start: 20110926
  54. GRANISETRON HYDROCHLORIDE [Concomitant]
     Dosage: UNK
     Route: 065
     Dates: start: 20110404, end: 20110404
  55. MESNA [Concomitant]
     Indication: PROPHYLAXIS
     Dosage: UNK
     Route: 065
     Dates: start: 20110331, end: 20110403

REACTIONS (17)
  - ACUTE GRAFT VERSUS HOST DISEASE IN SKIN [None]
  - ENGRAFT FAILURE [None]
  - LIVER DISORDER [None]
  - PYREXIA [None]
  - INFECTION [None]
  - NEUTROPENIA [None]
  - RESPIRATORY TRACT INFECTION [None]
  - SKIN INFECTION [None]
  - MENINGITIS TOXOPLASMAL [None]
  - CEREBRAL TOXOPLASMOSIS [None]
  - DECREASED APPETITE [None]
  - ACUTE GRAFT VERSUS HOST DISEASE [None]
  - BRAIN OEDEMA [None]
  - HAEMORRHAGE INTRACRANIAL [None]
  - HYPOMAGNESAEMIA [None]
  - DIARRHOEA [None]
  - BK VIRUS INFECTION [None]
